FAERS Safety Report 12968848 (Version 1)
Quarter: 2016Q4

REPORT INFORMATION
  Report Type: Spontaneous
  Country: US (occurrence: US)
  Receive Date: 20161123
  Receipt Date: 20161123
  Transmission Date: 20170207
  Serious: No
  Sender: FDA-Public Use
  Company Number: US-PFIZER INC-2016536179

PATIENT
  Age: 56 Year
  Sex: Female

DRUGS (3)
  1. PALBOCICLIB [Suspect]
     Active Substance: PALBOCICLIB
     Dosage: 75 MG, CYCLIC (NOW 1 WEEK TIME OFF)
     Dates: start: 20160606, end: 20160626
  2. PALBOCICLIB [Suspect]
     Active Substance: PALBOCICLIB
     Dosage: UNK
     Dates: start: 20160726, end: 20160808
  3. PALBOCICLIB [Suspect]
     Active Substance: PALBOCICLIB
     Dosage: UNK
     Dates: start: 20160704, end: 20160725

REACTIONS (5)
  - Dehydration [Unknown]
  - Neuropathy peripheral [Recovering/Resolving]
  - Oedema [Not Recovered/Not Resolved]
  - Neoplasm progression [Unknown]
  - Abdominal pain [Unknown]
